FAERS Safety Report 9685622 (Version 1)
Quarter: 2013Q4

REPORT INFORMATION
  Report Type: Spontaneous
  Country: US (occurrence: US)
  Receive Date: 20131113
  Receipt Date: 20131113
  Transmission Date: 20140711
  Serious: No
  Sender: FDA-Public Use
  Company Number: US-GLAXOSMITHKLINE-A1017136A

PATIENT
  Age: 79 Year
  Sex: Female
  Weight: 63.6 kg

DRUGS (2)
  1. COREG [Suspect]
     Indication: CARDIAC DISORDER
     Route: 048
     Dates: start: 201302
  2. XARELTO [Suspect]
     Indication: CEREBROVASCULAR ACCIDENT PROPHYLAXIS
     Dosage: 15MG PER DAY
     Route: 048
     Dates: start: 201302

REACTIONS (1)
  - Dysuria [Not Recovered/Not Resolved]
